FAERS Safety Report 9760364 (Version 1)
Quarter: 2013Q4

REPORT INFORMATION
  Report Type: Spontaneous
  Country: US (occurrence: US)
  Receive Date: 20131216
  Receipt Date: 20131216
  Transmission Date: 20140711
  Serious: No
  Sender: FDA-Public Use
  Company Number: US-GILEAD-2010-0028994

PATIENT
  Sex: Female
  Weight: 74.84 kg

DRUGS (16)
  1. LETAIRIS [Suspect]
     Indication: PULMONARY ARTERIAL HYPERTENSION
     Route: 048
     Dates: start: 20100413
  2. LASIX [Concomitant]
  3. COUMADIN [Concomitant]
  4. NIFEDIPINE [Concomitant]
  5. LISINOPRIL [Concomitant]
  6. CRESTOR [Concomitant]
  7. ZANTAC [Concomitant]
  8. OXYGEN [Concomitant]
  9. NORVASC [Concomitant]
  10. DARVOCET [Concomitant]
  11. FOSAMAX [Concomitant]
  12. ZOLOFT [Concomitant]
  13. PREDNISONE [Concomitant]
  14. ENABLEX [Concomitant]
  15. SIMVASTATIN [Concomitant]
  16. PREVACID [Concomitant]

REACTIONS (3)
  - Tremor [Unknown]
  - Feeling jittery [Unknown]
  - Diarrhoea [Unknown]
